FAERS Safety Report 12088059 (Version 1)
Quarter: 2016Q1

REPORT INFORMATION
  Report Type: Spontaneous
  Country: CH (occurrence: CH)
  Receive Date: 20160217
  Receipt Date: 20160217
  Transmission Date: 20160526
  Serious: Yes (Death, Hospitalization, Other)
  Sender: FDA-Public Use
  Company Number: CH-IGI LABORATORIES, INC.-1048020

PATIENT
  Age: 82 Year
  Sex: Male
  Weight: 78 kg

DRUGS (10)
  1. AUGMENTIN [Suspect]
     Active Substance: AMOXICILLIN\CLAVULANATE POTASSIUM
     Route: 048
     Dates: start: 20151229, end: 20160105
  2. XARELTO [Suspect]
     Active Substance: RIVAROXABAN
     Route: 048
     Dates: end: 20160115
  3. NOVALGIN [Concomitant]
     Active Substance: METAMIZOLE SODIUM
     Route: 048
     Dates: start: 20151214
  4. ZINACEF [Suspect]
     Active Substance: CEFUROXIME SODIUM
     Indication: AXILLARY LYMPHADENECTOMY
     Route: 041
     Dates: start: 20151214, end: 20151216
  5. DAFALGAN [Suspect]
     Active Substance: ACETAMINOPHEN
     Route: 048
     Dates: start: 20151214, end: 20160105
  6. NOVALGIN [Concomitant]
     Active Substance: METAMIZOLE SODIUM
     Route: 042
     Dates: start: 20151214
  7. ARCOXIA [Concomitant]
     Active Substance: ETORICOXIB
     Route: 048
  8. ZINAT [Suspect]
     Active Substance: CEFUROXIME AXETIL
     Route: 048
     Dates: start: 20151217, end: 20151220
  9. ECOFENAC [Concomitant]
     Active Substance: DICLOFENAC SODIUM
     Dates: start: 20151210
  10. BELOC ZOK RETARDTABLETTEN [Suspect]
     Active Substance: METOPROLOL SUCCINATE
     Route: 048

REACTIONS (22)
  - Depressed level of consciousness [Not Recovered/Not Resolved]
  - Pyrexia [Recovered/Resolved]
  - Neuroendocrine carcinoma of the skin [None]
  - Acute hepatic failure [Fatal]
  - Portal hypertension [Unknown]
  - Hepatomegaly [Not Recovered/Not Resolved]
  - Presyncope [Unknown]
  - Weight decreased [Unknown]
  - Lactic acidosis [Fatal]
  - Drug-induced liver injury [Not Recovered/Not Resolved]
  - Shock [Fatal]
  - Respiratory gas exchange disorder [Fatal]
  - Abdominal pain upper [Not Recovered/Not Resolved]
  - Impaired healing [None]
  - Acute kidney injury [Fatal]
  - Decreased appetite [Unknown]
  - Lymphangiosis carcinomatosa [None]
  - Multiple organ dysfunction syndrome [Fatal]
  - Metabolic disorder [Fatal]
  - Night sweats [Unknown]
  - Hepatitis cholestatic [Fatal]
  - Cholecystitis chronic [None]

NARRATIVE: CASE EVENT DATE: 201512
